FAERS Safety Report 6321565-9 (Version None)
Quarter: 2009Q3

REPORT INFORMATION
  Report Type: 
  Country: None (occurrence: None)
  Receive Date: 20090821
  Receipt Date: 20090821
  Transmission Date: 20100115
  Serious: Yes (Other)
  Sender: FDA-Public Use
  Company Number: None

PATIENT
  Sex: Male
  Weight: 21.7727 kg

DRUGS (1)
  1. ZYRTEC [Suspect]
     Indication: SEASONAL ALLERGY
     Dosage: 10 MG DAILY PO
     Route: 048
     Dates: start: 20080301, end: 20090815

REACTIONS (2)
  - AGGRESSION [None]
  - DISTURBANCE IN ATTENTION [None]
